FAERS Safety Report 5567325-8 (Version None)
Quarter: 2007Q4

REPORT INFORMATION
  Report Type: 
  Country: None (occurrence: None)
  Receive Date: 20071219
  Receipt Date: 20070809
  Transmission Date: 20080405
  Serious: No
  Sender: FDA-Public Use
  Company Number: US-ABBOTT-07P-163-0377602-00

PATIENT
  Sex: Male
  Weight: 99.8 kg

DRUGS (2)
  1. HYDROMORPHONE HCL [Suspect]
     Indication: PAIN
     Route: 048
     Dates: end: 20070401
  2. HYDROMORPHONE HCL [Suspect]
     Indication: ANGINA UNSTABLE

REACTIONS (1)
  - CONSTIPATION [None]
